FAERS Safety Report 7190726-1 (Version None)
Quarter: 2010Q4

REPORT INFORMATION
  Report Type: 
  Country: None (occurrence: None)
  Receive Date: 20101223
  Receipt Date: 20101215
  Transmission Date: 20110411
  Serious: Yes (Other)
  Sender: FDA-Public Use
  Company Number: KR-GENZYME-FABR-1001696

PATIENT
  Sex: Male
  Weight: 49 kg

DRUGS (1)
  1. FABRAZYME [Suspect]
     Indication: FABRY'S DISEASE
     Dosage: UNK UNK, UNK
     Route: 042
     Dates: start: 20101113

REACTIONS (6)
  - DYSPNOEA [None]
  - GENERALISED OEDEMA [None]
  - IRRITABILITY [None]
  - PRURITUS [None]
  - RASH GENERALISED [None]
  - WHEEZING [None]
